FAERS Safety Report 4533073-6 (Version None)
Quarter: 2004Q4

REPORT INFORMATION
  Report Type: 
  Country: None (occurrence: None)
  Receive Date: 20041220
  Receipt Date: 20041220
  Transmission Date: 20050328
  Serious: Yes (Life-Threatening, Disabling)
  Sender: FDA-Public Use
  Company Number: None

PATIENT
  Age: 15 Year
  Sex: Male
  Weight: 104.3273 kg

DRUGS (1)
  1. ACCUTANE [Suspect]
     Indication: ACNE
     Dosage: 40-80 MG DAY ORAL
     Route: 048
     Dates: start: 19870123, end: 19870523

REACTIONS (5)
  - BIPOLAR DISORDER [None]
  - MENTAL DISORDER [None]
  - OBSESSIVE-COMPULSIVE DISORDER [None]
  - PSYCHOTIC DISORDER [None]
  - SUICIDAL IDEATION [None]
